FAERS Safety Report 13044404 (Version 1)
Quarter: 2016Q4

REPORT INFORMATION
  Report Type: Spontaneous
  Country: US (occurrence: US)
  Receive Date: 20161220
  Receipt Date: 20161220
  Transmission Date: 20170207
  Serious: Yes (Other)
  Sender: FDA-Public Use
  Company Number: US-ROCHE-1042031

PATIENT
  Sex: Male
  Weight: 86.26 kg

DRUGS (1)
  1. ZELBORAF [Suspect]
     Active Substance: VEMURAFENIB
     Indication: METASTATIC MALIGNANT MELANOMA
     Route: 048
     Dates: start: 201201, end: 201208

REACTIONS (12)
  - Squamous cell carcinoma [Unknown]
  - Mass [Unknown]
  - Sunburn [Unknown]
  - Pain in extremity [Unknown]
  - Arthralgia [Unknown]
  - Flushing [Unknown]
  - Ageusia [Unknown]
  - Fatigue [Unknown]
  - Neoplasm progression [Not Recovered/Not Resolved]
  - Induration [Unknown]
  - Alopecia [Unknown]
  - Nipple pain [Unknown]
